FAERS Safety Report 17628859 (Version 3)
Quarter: 2020Q2

REPORT INFORMATION
  Report Type: Spontaneous
  Country: DE (occurrence: DE)
  Receive Date: 20200406
  Receipt Date: 20200629
  Transmission Date: 20200713
  Serious: Yes (Hospitalization)
  Sender: FDA-Public Use
  Company Number: DE-BEH-2020115389

PATIENT
  Age: 27 Year
  Sex: Female
  Weight: 165 kg

DRUGS (2)
  1. RHOPHYLAC [Suspect]
     Active Substance: HUMAN RHO(D) IMMUNE GLOBULIN
     Indication: HAEMORRHAGE IN PREGNANCY
     Dosage: 300 MICROGRAM, SINGLE (300?G 1X)
     Route: 030
     Dates: start: 20200206
  2. RHOPHYLAC [Suspect]
     Active Substance: HUMAN RHO(D) IMMUNE GLOBULIN
     Indication: HAEMORRHAGE IN PREGNANCY
     Dosage: 300 MICROGRAM, SINGLE (300?G 1X)
     Route: 030
     Dates: start: 20200206

REACTIONS (3)
  - Pruritus [Recovered/Resolved]
  - Rash [Recovered/Resolved]
  - Arthritis [Recovered/Resolved]

NARRATIVE: CASE EVENT DATE: 20200210
